FAERS Safety Report 5169280-1 (Version None)
Quarter: 2006Q4

REPORT INFORMATION
  Report Type: 
  Country: None (occurrence: None)
  Receive Date: 20061211
  Receipt Date: 20061115
  Transmission Date: 20070319
  Serious: Yes (Hospitalization)
  Sender: FDA-Public Use
  Company Number: DE-PURDUE-DEU_2006_0002663

PATIENT
  Age: 72 Year
  Sex: Female
  Weight: 65 kg

DRUGS (2)
  1. OXYCODONE HCL/NALOXONE HCL CR TAB 10/5MG [Suspect]
     Indication: CANCER PAIN
     Dosage: 10 MG, AM
     Route: 048
     Dates: start: 20061005, end: 20061007
  2. AROMATASE INHIBITOR [Concomitant]

REACTIONS (1)
  - HYPERTENSIVE CRISIS [None]
